FAERS Safety Report 7433929-0 (Version None)
Quarter: 2011Q2

REPORT INFORMATION
  Report Type: 
  Country: None (occurrence: None)
  Receive Date: 20110418
  Receipt Date: 20110408
  Transmission Date: 20111010
  Serious: Yes (Death, Hospitalization)
  Sender: FDA-Public Use
  Company Number: 115413

PATIENT
  Age: 20 Year
  Sex: Female

DRUGS (4)
  1. CISPLATIN [Suspect]
     Indication: CHEMOTHERAPY
     Dosage: 20 MG/M2/DAY
  2. VINORELBINE TARTRATE [Suspect]
     Indication: CHEMOTHERAPY
     Dosage: 20 MG/M2/DAY
  3. TOPOTECAN [Concomitant]
  4. IDIOPATHIC HYPERAMMONEMIA [Concomitant]

REACTIONS (8)
  - HYPERAMMONAEMIA [None]
  - DISORIENTATION [None]
  - NEUTROPENIA [None]
  - LIVER DISORDER [None]
  - RESPIRATORY ALKALOSIS [None]
  - REFUSAL OF TREATMENT BY RELATIVE [None]
  - SOMNOLENCE [None]
  - CONVULSION [None]
